FAERS Safety Report 18393567 (Version 2)
Quarter: 2020Q4

REPORT INFORMATION
  Report Type: Report from Study
  Country: CA (occurrence: CA)
  Receive Date: 20201016
  Receipt Date: 20201102
  Transmission Date: 20210114
  Serious: Yes (Other)
  Sender: FDA-Public Use
  Company Number: CA-JNJFOC-20200935922

PATIENT
  Age: 57 Year
  Sex: Female
  Weight: 73 kg

DRUGS (2)
  1. STELARA [Suspect]
     Active Substance: USTEKINUMAB
     Indication: PSORIASIS
     Dosage: THE PATIENT RECEIVED 13TH 45 MG DOSE ON 26-OCT-2020
     Route: 058
     Dates: start: 20180115
  2. STELARA [Suspect]
     Active Substance: USTEKINUMAB
     Route: 058

REACTIONS (6)
  - Off label use [Unknown]
  - Ear infection [Unknown]
  - Fall [Unknown]
  - Urinary tract infection [Unknown]
  - Product use issue [Unknown]
  - Rib fracture [Unknown]

NARRATIVE: CASE EVENT DATE: 20201004
